FAERS Safety Report 9285880 (Version 4)
Quarter: 2013Q3

REPORT INFORMATION
  Report Type: Spontaneous
  Country: FR (occurrence: FR)
  Receive Date: 20130513
  Receipt Date: 20130722
  Transmission Date: 20140515
  Serious: Yes (Hospitalization)
  Sender: FDA-Public Use
  Company Number: FR-PFIZER INC-2013139435

PATIENT
  Age: 50 Year
  Sex: Male

DRUGS (6)
  1. ARACYTINE [Suspect]
     Indication: ACUTE MYELOID LEUKAEMIA
     Dosage: 1 G, 1X/DAY
     Route: 042
     Dates: start: 20121207, end: 20121209
  2. ARACYTINE [Suspect]
     Indication: CHEMOTHERAPY
  3. GRANOCYTE [Suspect]
     Indication: ACUTE MYELOID LEUKAEMIA
     Dosage: 470 UG, 1X/DAY
     Route: 042
     Dates: start: 20121207, end: 20121209
  4. GRANOCYTE [Suspect]
     Indication: CHEMOTHERAPY
  5. DAUNORUBICIN [Suspect]
     Indication: ACUTE MYELOID LEUKAEMIA
     Dosage: 120 MG, 1X/DAY
     Route: 042
     Dates: start: 20121207, end: 20121212
  6. DAUNORUBICIN [Suspect]
     Indication: CHEMOTHERAPY

REACTIONS (5)
  - Hypersensitivity vasculitis [Recovered/Resolved]
  - Proteinuria [Recovering/Resolving]
  - Renal failure [Recovering/Resolving]
  - Lung disorder [Recovering/Resolving]
  - Activated partial thromboplastin time prolonged [Recovering/Resolving]
